FAERS Safety Report 10043162 (Version 2)
Quarter: 2014Q2

REPORT INFORMATION
  Report Type: Spontaneous
  Country: US (occurrence: US)
  Receive Date: 20140328
  Receipt Date: 20140623
  Transmission Date: 20141212
  Serious: Yes (Other)
  Sender: FDA-Public Use
  Company Number: US-BRISTOL-MYERS SQUIBB COMPANY-20547667

PATIENT
  Age: 83 Year
  Sex: Female
  Weight: 74.83 kg

DRUGS (3)
  1. ELIQUIS [Suspect]
     Dosage: INTERRUPTED 27MAY2013 FOR 3 DAYS PRIOR TO SURGERY.?APR2013-18MAR14
     Dates: start: 201304
  2. AZOR [Concomitant]
     Indication: BLOOD PRESSURE
     Dosage: 1DF:5-40MG.
  3. TOPROL [Concomitant]
     Indication: CARDIAC DISORDER

REACTIONS (4)
  - Maculopathy [Unknown]
  - Rash [Recovered/Resolved]
  - Pruritus [Not Recovered/Not Resolved]
  - Arthralgia [Recovered/Resolved]
